FAERS Safety Report 25197792 (Version 1)
Quarter: 2025Q2

REPORT INFORMATION
  Report Type: Spontaneous
  Country: SE (occurrence: SE)
  Receive Date: 20250415
  Receipt Date: 20250415
  Transmission Date: 20250716
  Serious: Yes (Other)
  Sender: AUROBINDO
  Company Number: SE-AUROBINDO-AUR-APL-2025-018381

PATIENT
  Sex: Female

DRUGS (1)
  1. ALENDRONATE [Suspect]
     Active Substance: ALENDRONATE SODIUM
     Indication: Product used for unknown indication
     Dosage: UNK UNK, EVERY WEEK
     Route: 065

REACTIONS (2)
  - Polyneuropathy [Unknown]
  - Pain [Unknown]
